FAERS Safety Report 8356263-3 (Version None)
Quarter: 2012Q2

REPORT INFORMATION
  Report Type: 
  Country: None (occurrence: None)
  Receive Date: 20120514
  Receipt Date: 20120503
  Transmission Date: 20120825
  Serious: Yes (Other)
  Sender: FDA-Public Use
  Company Number: IT-JNJFOC-20120313837

PATIENT

DRUGS (11)
  1. DOXORUBICIN HCL [Suspect]
     Indication: HODGKIN'S DISEASE
     Route: 042
  2. VINDESINE [Suspect]
     Indication: HODGKIN'S DISEASE
     Route: 065
  3. PROCARBAZINE HYDROCHLORIDE [Suspect]
     Indication: HODGKIN'S DISEASE
     Route: 065
  4. MECHLORETHAMINE [Suspect]
     Indication: HODGKIN'S DISEASE
     Route: 065
  5. VINCRISTINE [Suspect]
     Indication: HODGKIN'S DISEASE
     Route: 065
  6. EPIRUBICIN HYDROCHLORIDE [Suspect]
     Indication: HODGKIN'S DISEASE
     Route: 065
  7. BLEOMYCIN SULFATE [Suspect]
     Indication: HODGKIN'S DISEASE
     Route: 065
  8. DOXORUBICIN HCL [Suspect]
     Route: 065
  9. PREDNISONE TAB [Suspect]
     Indication: HODGKIN'S DISEASE
     Route: 065
  10. VINBLASTINE SULFATE [Suspect]
     Indication: HODGKIN'S DISEASE
     Route: 065
  11. LOMUSTINE [Suspect]
     Indication: HODGKIN'S DISEASE
     Route: 065

REACTIONS (1)
  - SQUAMOUS CELL CARCINOMA [None]
